FAERS Safety Report 7329466-4 (Version None)
Quarter: 2011Q1

REPORT INFORMATION
  Report Type: 
  Country: None (occurrence: None)
  Receive Date: 20110303
  Receipt Date: 20110222
  Transmission Date: 20110831
  Serious: Yes (Other)
  Sender: FDA-Public Use
  Company Number: US-ASTRAZENECA-2011SE10116

PATIENT
  Age: 58 Year
  Sex: Female
  Weight: 91.6 kg

DRUGS (3)
  1. SEROQUEL [Suspect]
     Indication: BIPOLAR DISORDER
     Route: 048
     Dates: start: 20090101
  2. RISPERDAL [Concomitant]
  3. DEPAKOTE [Concomitant]

REACTIONS (1)
  - BREAST CANCER [None]
